FAERS Safety Report 9648849 (Version 3)
Quarter: 2013Q4

REPORT INFORMATION
  Report Type: Spontaneous
  Country: US (occurrence: US)
  Receive Date: 20131028
  Receipt Date: 20131118
  Transmission Date: 20140711
  Serious: Yes (Hospitalization, Other)
  Sender: FDA-Public Use
  Company Number: US-GILEAD-2013-0086344

PATIENT
  Age: 64 Year
  Sex: Female

DRUGS (18)
  1. LETAIRIS [Suspect]
     Indication: PULMONARY ARTERIAL HYPERTENSION
     Dosage: 10 MG, UNK
     Route: 048
     Dates: start: 20130601
  2. LETAIRIS [Suspect]
     Indication: EMBOLISM
  3. LETAIRIS [Suspect]
     Indication: OBESITY
  4. ATORVASTATIN [Concomitant]
  5. METFORMIN [Concomitant]
  6. FUROSEMIDE [Concomitant]
  7. JANUVIA [Concomitant]
  8. LISINOPRIL [Concomitant]
  9. GLIMEPIRIDE [Concomitant]
  10. ATENOLOL [Concomitant]
  11. FENOFIBRATE [Concomitant]
  12. TRILIPIX [Concomitant]
  13. GABAPENTIN [Concomitant]
  14. CYMBALTA [Concomitant]
  15. WARFARIN [Concomitant]
  16. LEVOCETIRIZINE [Concomitant]
  17. RANITIDINE [Concomitant]
  18. LEVOTHYROXINE [Concomitant]

REACTIONS (2)
  - Ulcer haemorrhage [Recovered/Resolved]
  - Myocardial infarction [Recovered/Resolved]
